FAERS Safety Report 12956756 (Version 1)
Quarter: 2016Q4

REPORT INFORMATION
  Report Type: Spontaneous
  Country: TR (occurrence: TR)
  Receive Date: 20161118
  Receipt Date: 20161118
  Transmission Date: 20170207
  Serious: Yes (Other)
  Sender: FDA-Public Use
  Company Number: ALCN2016TR007697

PATIENT
  Age: 21 Year
  Sex: Female

DRUGS (4)
  1. ITRACONAZOLE. [Concomitant]
     Active Substance: ITRACONAZOLE
     Indication: ACANTHAMOEBA KERATITIS
     Dosage: 1 DF, BID
     Route: 048
  2. PROPAMIDINE ISETIONATE [Suspect]
     Active Substance: PROPAMIDINE ISETHIONATE
     Indication: ACANTHAMOEBA KERATITIS
     Dosage: 1 DF, QH
     Route: 061
  3. GENTAMICIN. [Suspect]
     Active Substance: GENTAMICIN
     Indication: ACANTHAMOEBA KERATITIS
     Dosage: 6 DF, BID
     Route: 061
  4. MOXIFLOXACIN. [Suspect]
     Active Substance: MOXIFLOXACIN
     Indication: ACANTHAMOEBA KERATITIS
     Dosage: 6 DF, QD
     Route: 047

REACTIONS (6)
  - Eye inflammation [Unknown]
  - Product use issue [Unknown]
  - Corneal epithelium defect [Recovered/Resolved]
  - Dacryoadenitis acquired [Recovered/Resolved]
  - Condition aggravated [Unknown]
  - Ulcerative keratitis [Recovered/Resolved]
